FAERS Safety Report 9833256 (Version 3)
Quarter: 2014Q1

REPORT INFORMATION
  Report Type: Report from Study
  Country: JP (occurrence: JP)
  Receive Date: 20140121
  Receipt Date: 20140129
  Transmission Date: 20141002
  Serious: Yes (Other)
  Sender: FDA-Public Use
  Company Number: JP-B.I. PHARMACEUTICALS,INC./RIDGEFIELD-2013-BI-25567NB

PATIENT
  Age: 76 Year
  Sex: Male
  Weight: 60 kg

DRUGS (4)
  1. TRAZENTA [Suspect]
     Indication: TYPE 2 DIABETES MELLITUS
     Dosage: 5 MG
     Route: 048
     Dates: start: 20130608
  2. DONEPEZIL HYDROCHLORIDE [Suspect]
     Dosage: 5 MG
     Route: 048
  3. ITRIZOLE / ITRACONAZOLE [Concomitant]
     Route: 048
  4. PROPECIA / FINASTERIDE [Concomitant]
     Route: 065

REACTIONS (2)
  - Road traffic accident [Unknown]
  - Retrograde amnesia [Recovered/Resolved]
